FAERS Safety Report 5493567-6 (Version None)
Quarter: 2007Q4

REPORT INFORMATION
  Report Type: 
  Country: None (occurrence: None)
  Receive Date: 20071019
  Receipt Date: 20071012
  Transmission Date: 20080405
  Serious: Yes (Other)
  Sender: FDA-Public Use
  Company Number: 2007332980

PATIENT
  Age: 29 Year
  Sex: Male
  Weight: 79.4 kg

DRUGS (1)
  1. BENADRYL [Suspect]
     Indication: HYPERSENSITIVITY
     Dosage: 32 TO 36 ULTRATABS, ORAL
     Route: 048
     Dates: start: 20071008, end: 20071008

REACTIONS (2)
  - CONFUSIONAL STATE [None]
  - HYPOAESTHESIA [None]
